FAERS Safety Report 15111431 (Version 3)
Quarter: 2018Q4

REPORT INFORMATION
  Report Type: Report from Study
  Country: GB (occurrence: GB)
  Receive Date: 20180705
  Receipt Date: 20181203
  Transmission Date: 20190204
  Serious: Yes (Hospitalization, Other)
  Sender: FDA-Public Use
  Company Number: GB-GILEAD-2018-0348032

PATIENT
  Age: 83 Year
  Sex: Female
  Weight: 51 kg

DRUGS (14)
  1. G-CSF [Concomitant]
     Active Substance: GRANULOCYTE COLONY-STIMULATING FACTOR NOS
  2. METOCLOPRAMIDE. [Concomitant]
     Active Substance: METOCLOPRAMIDE
     Indication: CHRONIC LYMPHOCYTIC LEUKAEMIA
     Dosage: 10 MG, Q1MONTH
     Route: 048
     Dates: start: 20151020, end: 20151029
  3. BENDAMUSTINE [Suspect]
     Active Substance: BENDAMUSTINE
     Indication: CHRONIC LYMPHOCYTIC LEUKAEMIA
     Dosage: 100 MG, Q1MONTH
     Route: 041
     Dates: start: 20151022, end: 20151023
  4. CHLORHEXIDINE [Concomitant]
     Active Substance: CHLORHEXIDINE
     Indication: CHRONIC LYMPHOCYTIC LEUKAEMIA
     Dosage: 10 ML, BID
     Route: 048
     Dates: start: 20151020, end: 20151103
  5. IDELALISIB [Suspect]
     Active Substance: IDELALISIB
     Indication: CHRONIC LYMPHOCYTIC LEUKAEMIA
     Dosage: 300 MG, QD
     Route: 048
     Dates: start: 20151022, end: 20151118
  6. PARACETAMOL [Concomitant]
     Active Substance: ACETAMINOPHEN
     Indication: CHRONIC LYMPHOCYTIC LEUKAEMIA
     Dosage: 1 G, Q1MONTH
     Route: 048
     Dates: start: 20151022, end: 20151029
  7. ALLOPURINOL. [Concomitant]
     Active Substance: ALLOPURINOL
     Indication: CHRONIC LYMPHOCYTIC LEUKAEMIA
     Dosage: 300 MG, Q1MONTH
     Route: 048
     Dates: start: 20151020, end: 20151103
  8. COTRIMOXAZOLE [Concomitant]
     Active Substance: SULFAMETHOXAZOLE\TRIMETHOPRIM
     Indication: CHRONIC LYMPHOCYTIC LEUKAEMIA
     Dosage: 480 MG, Q1MONTH
     Route: 048
     Dates: start: 20151104, end: 20151116
  9. DALTEPARIN [Concomitant]
     Active Substance: DALTEPARIN
  10. OFATUMUMAB [Suspect]
     Active Substance: OFATUMUMAB
     Indication: CHRONIC LYMPHOCYTIC LEUKAEMIA
     Dosage: 1300 MG, Q1MONTH
     Route: 041
     Dates: start: 20151022, end: 20151029
  11. ONDANSETRON [Concomitant]
     Active Substance: ONDANSETRON
     Indication: CHRONIC LYMPHOCYTIC LEUKAEMIA
     Dosage: 8 MG, EVERY TWODAYS
     Route: 048
     Dates: start: 20151022, end: 20151025
  12. CHLORPHENIRAMINE                   /00072501/ [Concomitant]
     Active Substance: CHLORPHENIRAMINE
     Indication: CHRONIC LYMPHOCYTIC LEUKAEMIA
     Dosage: 10 UG, Q1MONTH
     Route: 041
     Dates: start: 20151022, end: 20151029
  13. HYDROCORTISONE. [Concomitant]
     Active Substance: HYDROCORTISONE
     Indication: CHRONIC LYMPHOCYTIC LEUKAEMIA
     Dosage: 100 MG, Q1MONTH
     Route: 041
     Dates: start: 20151022, end: 20151029
  14. NYSTATIN. [Concomitant]
     Active Substance: NYSTATIN
     Indication: CELLULITIS

REACTIONS (2)
  - Lung infection [Recovered/Resolved]
  - Herpes virus infection [Recovered/Resolved]

NARRATIVE: CASE EVENT DATE: 20151030
